FAERS Safety Report 9519149 (Version 3)
Quarter: 2017Q4

REPORT INFORMATION
  Report Type: Spontaneous
  Country: US (occurrence: US)
  Receive Date: 20130912
  Receipt Date: 20171219
  Transmission Date: 20180321
  Serious: Yes (Hospitalization)
  Sender: FDA-Public Use
  Company Number: US-OTSUKA-US-2013-11687

PATIENT
  Age: 32 Year
  Sex: Male

DRUGS (3)
  1. BENADRYL [Concomitant]
     Active Substance: DIPHENHYDRAMINE HYDROCHLORIDE
     Indication: SLEEP DISORDER
     Dosage: UNK
     Dates: start: 20130829, end: 20131003
  2. ABILIFY [Suspect]
     Active Substance: ARIPIPRAZOLE
     Indication: BIPOLAR I DISORDER
     Dosage: 15 MG, QD
     Route: 048
     Dates: start: 20121115
  3. ABILIFY MAINTENA [Suspect]
     Active Substance: ARIPIPRAZOLE
     Indication: BIPOLAR I DISORDER
     Dosage: 400 MG, SINGLE
     Route: 030
     Dates: start: 20130715, end: 20130715

REACTIONS (3)
  - Psychiatric symptom [Unknown]
  - Off label use [Unknown]
  - Delusion [Recovered/Resolved]

NARRATIVE: CASE EVENT DATE: 201308
